APPROVED DRUG PRODUCT: HEPARIN SODIUM
Active Ingredient: HEPARIN SODIUM
Strength: 5,000 UNITS/0.5ML
Dosage Form/Route: INJECTABLE;INJECTION
Application: N017037 | Product #013
Applicant: HIKMA PHARMACEUTICALS USA INC
Approved: Apr 7, 1986 | RLD: No | RS: No | Type: RX